FAERS Safety Report 9645364 (Version 1)
Quarter: 2013Q4

REPORT INFORMATION
  Report Type: Spontaneous
  Country: US (occurrence: US)
  Receive Date: 20131025
  Receipt Date: 20131025
  Transmission Date: 20140711
  Serious: Yes (Life-Threatening, Hospitalization)
  Sender: FDA-Public Use
  Company Number: US-ELI_LILLY_AND_COMPANY-US201310006808

PATIENT
  Age: 54 Year
  Sex: Female

DRUGS (2)
  1. INSULIN HUMAN [Suspect]
     Indication: PRODUCT USED FOR UNKNOWN INDICATION
     Route: 065
  2. HUMALOG LISPRO [Suspect]
     Indication: PRODUCT USED FOR UNKNOWN INDICATION
     Dosage: UNK
     Route: 065
     Dates: start: 20131016

REACTIONS (11)
  - Sepsis [Unknown]
  - Urinary tract infection [Unknown]
  - Blood glucose decreased [Recovered/Resolved]
  - Constipation [Not Recovered/Not Resolved]
  - Vomiting [Unknown]
  - Dysuria [Unknown]
  - Tremor [Unknown]
  - Fluid retention [Not Recovered/Not Resolved]
  - Fibromyalgia [Unknown]
  - Blood glucose increased [Unknown]
  - Wrong technique in drug usage process [Recovered/Resolved]
